FAERS Safety Report 19598441 (Version 3)
Quarter: 2021Q3

REPORT INFORMATION
  Report Type: Report from Study
  Country: US (occurrence: US)
  Receive Date: 20210723
  Receipt Date: 20210809
  Transmission Date: 20211014
  Serious: No
  Sender: FDA-Public Use
  Company Number: NVSC2021US150168

PATIENT
  Sex: Female

DRUGS (2)
  1. GLATOPA [Suspect]
     Active Substance: GLATIRAMER ACETATE
     Indication: MULTIPLE SCLEROSIS
     Dosage: 40 MG, TIW
     Route: 058
  2. GLATOPA [Suspect]
     Active Substance: GLATIRAMER ACETATE
     Dosage: 40 MG (ONE INJECTION EVERY OTHER DAY)
     Route: 058
     Dates: start: 20210712, end: 20210712

REACTIONS (6)
  - Product dose omission issue [Unknown]
  - Injection site irritation [Unknown]
  - Injection site reaction [Unknown]
  - Injection site mass [Unknown]
  - Pruritus [Unknown]
  - Injection site bruising [Unknown]
